FAERS Safety Report 6578720-2 (Version None)
Quarter: 2010Q1

REPORT INFORMATION
  Report Type: 
  Country: None (occurrence: None)
  Receive Date: 20100202
  Receipt Date: 20100115
  Transmission Date: 20100710
  Serious: Yes (Other)
  Sender: FDA-Public Use
  Company Number: JPI-P-009400

PATIENT
  Age: 38 Year
  Sex: Male

DRUGS (9)
  1. LUVOX [Suspect]
     Indication: DEPRESSION
     Dosage: 150 MG, 1 D, ORAL
     Route: 048
     Dates: start: 20080319, end: 20080301
  2. ZOTEPINE [Suspect]
     Indication: DRUG USE FOR UNKNOWN INDICATION
     Dosage: 60 MG, 1 D, ORAL, 120 MG, 1 D, ORAL
     Route: 048
     Dates: end: 20080329
  3. ZOTEPINE [Suspect]
     Indication: DRUG USE FOR UNKNOWN INDICATION
     Dosage: 60 MG, 1 D, ORAL, 120 MG, 1 D, ORAL
     Route: 048
     Dates: end: 20080329
  4. HALOPERIDOL [Concomitant]
  5. LEVOMEPROMAZINE MALEATE [Concomitant]
  6. BIPERIDEN HYDROCHLORIDE [Concomitant]
  7. PROMETHAZINE HCL [Concomitant]
  8. BACLOFEN [Concomitant]
  9. BROTIZOLAM [Concomitant]

REACTIONS (3)
  - ANTIPSYCHOTIC DRUG LEVEL INCREASED [None]
  - CONVULSION [None]
  - DRUG INTERACTION [None]
